FAERS Safety Report 14197666 (Version 2)
Quarter: 2018Q1

REPORT INFORMATION
  Report Type: Spontaneous
  Country: DE (occurrence: DE)
  Receive Date: 20171116
  Receipt Date: 20180301
  Transmission Date: 20180508
  Serious: Yes (Other)
  Sender: FDA-Public Use
  Company Number: DE-ASTRAZENECA-2017SF16414

PATIENT
  Age: 55 Year
  Sex: Male
  Weight: 142 kg

DRUGS (8)
  1. BYETTA [Suspect]
     Active Substance: EXENATIDE
     Dosage: 5 MG TWO TIMES A DAY (10 MG DAILY)
     Route: 065
     Dates: start: 20070901
  2. BYETTA [Suspect]
     Active Substance: EXENATIDE
     Dosage: 10 MG TWO TIMES A DAY (20 MG DAILY)
     Route: 065
     Dates: start: 20071001
  3. METFORMIN [Concomitant]
     Active Substance: METFORMIN HYDROCHLORIDE
     Dosage: 1000 MG TWO TIMES A DAY (2000 GM DAILY)
     Dates: start: 20071001
  4. GLIMEPIRIDE. [Concomitant]
     Active Substance: GLIMEPIRIDE
     Dates: start: 200710
  5. METFORMIN [Concomitant]
     Active Substance: METFORMIN HYDROCHLORIDE
     Dosage: 1000 MG TWO TIMES A DAY (2000 MG DAILY)
     Dates: start: 20070901
  6. BYETTA [Suspect]
     Active Substance: EXENATIDE
     Dosage: 10 MG TWO TIMES A DAY (20 MG DAILY)
     Route: 065
     Dates: start: 20080201
  7. GLIMEPIRIDE. [Concomitant]
     Active Substance: GLIMEPIRIDE
     Dates: start: 200709
  8. METFORMIN [Concomitant]
     Active Substance: METFORMIN HYDROCHLORIDE
     Dosage: 1000 MG TWO TIMES A DAY (2000 MG DAILY)
     Dates: start: 20080201

REACTIONS (2)
  - Fluid intake reduced [Unknown]
  - Acute kidney injury [Unknown]
